FAERS Safety Report 17605776 (Version 1)
Quarter: 2020Q1

REPORT INFORMATION
  Report Type: Spontaneous
  Country: IT (occurrence: IT)
  Receive Date: 20200331
  Receipt Date: 20200331
  Transmission Date: 20200409
  Serious: Yes (Other)
  Sender: FDA-Public Use
  Company Number: IT-TEVA-2020-IT-1170140

PATIENT
  Age: 77 Year
  Sex: Male

DRUGS (4)
  1. ONDANSETRON EG [Concomitant]
     Active Substance: ONDANSETRON HYDROCHLORIDE
  2. DELTACORTENE [Concomitant]
     Active Substance: PREDNISONE
  3. DECADRON [Concomitant]
     Active Substance: DEXAMETHASONE
  4. PACLITAXEL TEVA 6 MG/ML, CONCENTRATO PER SOLUZIONE PER INFUSIONE [Suspect]
     Active Substance: PACLITAXEL
     Indication: OESOPHAGEAL NEOPLASM
     Route: 042
     Dates: start: 20190909

REACTIONS (9)
  - Neutropenia [Unknown]
  - Bone pain [Unknown]
  - Salivary hypersecretion [Unknown]
  - Diarrhoea [Unknown]
  - Constipation [Unknown]
  - Headache [Unknown]
  - Aphthous ulcer [Unknown]
  - Pain in extremity [Unknown]
  - Nausea [Unknown]

NARRATIVE: CASE EVENT DATE: 20191001
